FAERS Safety Report 8130046-1 (Version None)
Quarter: 2012Q1

REPORT INFORMATION
  Report Type: 
  Country: None (occurrence: None)
  Receive Date: 20120210
  Receipt Date: 20120130
  Transmission Date: 20120608
  Serious: Yes (Other)
  Sender: FDA-Public Use
  Company Number: GB-ROCHE-1034918

PATIENT
  Age: 47 Year
  Sex: Female

DRUGS (2)
  1. HERCEPTIN [Suspect]
     Indication: BREAST CANCER
  2. NAVELBINE [Suspect]
     Indication: BREAST CANCER
     Route: 048

REACTIONS (6)
  - MUCOSAL INFLAMMATION [None]
  - NAUSEA [None]
  - ALOPECIA [None]
  - FATIGUE [None]
  - DECREASED APPETITE [None]
  - NEUTROPENIA [None]
